FAERS Safety Report 13368226 (Version 3)
Quarter: 2017Q4

REPORT INFORMATION
  Report Type: Report from Study
  Country: DE (occurrence: DE)
  Receive Date: 20170324
  Receipt Date: 20171010
  Transmission Date: 20180320
  Serious: Yes (Hospitalization)
  Sender: FDA-Public Use
  Company Number: DE-PFIZER INC-2880834

PATIENT
  Age: 37 Year
  Sex: Male
  Weight: 80 kg

DRUGS (18)
  1. 5-FLUOROURACIL /00098801/ [Suspect]
     Active Substance: FLUOROURACIL
     Indication: COLORECTAL CANCER METASTATIC
     Dosage: 2400 MG/M2, OVER 46 H ON DAY 1 OF EACH 14-DAY CYCLE
     Route: 042
     Dates: start: 20150416, end: 20150416
  2. ATROPIN /00002802/ [Concomitant]
     Indication: VERTIGO
     Dosage: 0.5 AMPOULE 1 IN 2 WEEKS
     Dates: start: 20150416
  3. NEULASTA [Concomitant]
     Active Substance: PEGFILGRASTIM
     Indication: WHITE BLOOD CELL COUNT DECREASED
     Dosage: 6 MG 1 IN 1 DAY
     Route: 042
     Dates: start: 20150424, end: 20150424
  4. DEXAMETHASONE. [Concomitant]
     Active Substance: DEXAMETHASONE
     Indication: PROCTITIS
     Dosage: 8 MG, FREQ: 1 DAY; INTERVAL:1
     Route: 048
     Dates: start: 20150414
  5. NOVALGIN [Concomitant]
     Active Substance: METAMIZOLE SODIUM
     Indication: PROCTITIS
     Dosage: 500 MG, FREQ: AS NEEDED
     Route: 048
     Dates: start: 20150423
  6. KEVATRIL [Concomitant]
     Active Substance: GRANISETRON HYDROCHLORIDE
     Indication: PROPHYLAXIS
     Dosage: 1 AMPOULE, 1 IN 2 WEEKS
     Route: 042
     Dates: start: 20150416
  7. DEXAMETHASONE. [Concomitant]
     Active Substance: DEXAMETHASONE
     Indication: PROPHYLAXIS
  8. ATROPIN /00002802/ [Concomitant]
     Indication: PROPHYLAXIS
     Dosage: 0.5 AMPOULE 1 IN 1 DAY
     Dates: start: 20150416, end: 20150416
  9. IVEMEND [Concomitant]
     Active Substance: FOSAPREPITANT DIMEGLUMINE
     Indication: PROPHYLAXIS
     Dosage: 150 MG, 1 IN 2 WEEKS
     Route: 042
     Dates: start: 20150416
  10. VALORON N /00628301/ [Concomitant]
     Active Substance: NALOXONE HYDROCHLORIDE\TILIDINE HYDROCHLORIDE
     Indication: PROCTITIS
     Dosage: 50 MG, 1X/DAY
     Route: 048
     Dates: start: 20150414
  11. IRINOTECAN HCL [Suspect]
     Active Substance: IRINOTECAN HYDROCHLORIDE
     Indication: COLORECTAL CANCER METASTATIC
     Dosage: 180 MG/M2, DAY 1OF EACH 14-DAY CYCLE
     Route: 042
     Dates: start: 20150416, end: 20150416
  12. BLINDED THERAPY [Suspect]
     Active Substance: INVESTIGATIONAL PRODUCT
     Indication: COLORECTAL CANCER METASTATIC
     Dosage: DAY -2 THROUGH 5 OF EACH 14-DAY CYCLE 2 IN 1 DAY
     Route: 048
     Dates: start: 20150414, end: 20150420
  13. FORTECORTIN /00016001/ [Concomitant]
     Active Substance: DEXAMETHASONE
     Indication: PROPHYLAXIS
     Dosage: 8 MG, 1 IN 2 WEEKS
     Route: 042
     Dates: start: 20150416
  14. NOVALGIN [Concomitant]
     Active Substance: METAMIZOLE SODIUM
     Dosage: UNK
  15. LEUCOVORIN /00566701/ [Concomitant]
     Active Substance: LEUCOVORIN
     Indication: COLORECTAL CANCER METASTATIC
     Dosage: 400 MG/M2, DAY 1OF EACH 14-DAY CYCLE
     Route: 042
     Dates: start: 20150416
  16. LOPERAMID [Concomitant]
     Active Substance: LOPERAMIDE
     Indication: PROCTITIS
     Dosage: UNK, AS NEEDED
     Route: 048
     Dates: start: 20150414
  17. BEVACIZUMAB. [Suspect]
     Active Substance: BEVACIZUMAB
     Indication: COLORECTAL CANCER METASTATIC
     Dosage: 5 MG/KG
     Route: 042
     Dates: start: 20150416, end: 20150416
  18. 5-FLUOROURACIL /00098801/ [Suspect]
     Active Substance: FLUOROURACIL
     Dosage: 400 MG/M2, 1 IN 2 WEEKS
     Route: 042
     Dates: start: 20150416, end: 20150418

REACTIONS (1)
  - Proctitis [Recovered/Resolved]

NARRATIVE: CASE EVENT DATE: 20150428
